FAERS Safety Report 23942402 (Version 1)
Quarter: 2024Q2

REPORT INFORMATION
  Report Type: Spontaneous
  Country: US (occurrence: US)
  Receive Date: 20240605
  Receipt Date: 20240605
  Transmission Date: 20240715
  Serious: No
  Sender: FDA-Public Use
  Company Number: US-REGENERON PHARMACEUTICALS, INC.-2024-073879

PATIENT
  Sex: Male

DRUGS (1)
  1. EYLEA HD [Suspect]
     Active Substance: AFLIBERCEPT
     Indication: Macular degeneration
     Dosage: 8 MG, ONCE A MONTH, FORMULATION: HD VIAL
     Dates: start: 20240506

REACTIONS (1)
  - Vitreous floaters [Unknown]

NARRATIVE: CASE EVENT DATE: 20240501
